FAERS Safety Report 26172764 (Version 2)
Quarter: 2025Q4

REPORT INFORMATION
  Report Type: Spontaneous
  Country: US (occurrence: US)
  Receive Date: 20251218
  Receipt Date: 20251218
  Transmission Date: 20260118
  Serious: Yes (Other)
  Sender: ASTELLAS
  Company Number: US-ASTELLAS-2025-AER-070457

PATIENT
  Age: 77 Year
  Sex: Male
  Weight: 68.5 kg

DRUGS (3)
  1. PADCEV [Suspect]
     Active Substance: ENFORTUMAB VEDOTIN-EJFV
     Indication: Bladder cancer
     Dosage: INTRAVENOUS INFUSION?2 DOSES OF PADCEV ONCE A WEEK, THEN ONE FREE WEEK AND THEN THE NEXT CYCLE START
     Route: 042
  2. PADCEV [Suspect]
     Active Substance: ENFORTUMAB VEDOTIN-EJFV
     Dosage: INTRAVENOUS INFUSION?2 DOSES OF PADCEV ONCE A WEEK, THEN ONE FREE WEEK AND THEN THE NEXT CYCLE START
     Route: 042
     Dates: start: 20251210
  3. KEYTRUDA [Concomitant]
     Active Substance: PEMBROLIZUMAB
     Indication: Product used for unknown indication
     Dosage: EVERY 21 DAYS
     Route: 042
     Dates: start: 2025

REACTIONS (1)
  - Cyst [Unknown]

NARRATIVE: CASE EVENT DATE: 20251211
